FAERS Safety Report 7259918-7 (Version None)
Quarter: 2011Q1

REPORT INFORMATION
  Report Type: 
  Country: None (occurrence: None)
  Receive Date: 20110130
  Receipt Date: 20100917
  Transmission Date: 20110831
  Serious: No
  Sender: FDA-Public Use
  Company Number: US-ABBOTT-10P-163-0671476-00

PATIENT
  Age: 66 Year
  Sex: Female

DRUGS (10)
  1. VOLTARIN [Concomitant]
     Indication: ARTHRITIS
     Dosage: DAILY
  2. GABAPENTIN [Concomitant]
     Indication: NEURALGIA
  3. SYNTHROID [Concomitant]
     Indication: HYPOTHYROIDISM
     Dosage: DAILY
  4. PRILOSEC [Concomitant]
     Indication: GASTROOESOPHAGEAL REFLUX DISEASE
  5. ESTROGEN REPLACEMENT [Concomitant]
     Indication: PRODUCT USED FOR UNKNOWN INDICATION
     Dosage: DAILY
  6. SINGULAIR [Concomitant]
     Indication: HYPERSENSITIVITY
     Dosage: DAILY
  7. HUMIRA [Suspect]
     Indication: PSORIATIC ARTHROPATHY
     Dates: start: 20100718, end: 20100827
  8. HYDROCODONE [Concomitant]
     Indication: ARTHRALGIA
  9. PACQUIN [Concomitant]
     Indication: OSTEOARTHRITIS
  10. NIASPAN [Concomitant]
     Indication: PRODUCT USED FOR UNKNOWN INDICATION

REACTIONS (1)
  - DIARRHOEA [None]
